FAERS Safety Report 17316787 (Version 1)
Quarter: 2020Q1

REPORT INFORMATION
  Report Type: Spontaneous
  Country: US (occurrence: US)
  Receive Date: 20200124
  Receipt Date: 20200124
  Transmission Date: 20200409
  Serious: No
  Sender: FDA-Public Use
  Company Number: US-PERRIGO-19US005560

PATIENT
  Sex: Female
  Weight: 19.96 kg

DRUGS (6)
  1. AMOXICILLIN. [Suspect]
     Active Substance: AMOXICILLIN
     Dosage: UNKNOWN, BID FOR 3 DAYS
     Route: 048
     Dates: start: 201902, end: 201902
  2. ACETAMINOPHEN. [Suspect]
     Active Substance: ACETAMINOPHEN
     Indication: PYREXIA
     Dosage: 7.5 ML, SINGLE
     Route: 048
     Dates: start: 201806, end: 201806
  3. IBUPROFEN. [Suspect]
     Active Substance: IBUPROFEN
     Indication: PYREXIA
     Dosage: 150 MG, SINGLE
     Route: 048
     Dates: start: 2017, end: 2017
  4. IBUPROFEN. [Suspect]
     Active Substance: IBUPROFEN
     Indication: PYREXIA
     Dosage: 150 MG, SINGLE
     Route: 048
     Dates: start: 201806, end: 201806
  5. AMOXICILLIN. [Suspect]
     Active Substance: AMOXICILLIN
     Dosage: UNKNOWN, BID FOR 10 DAYS
     Route: 048
     Dates: start: 201806, end: 201806
  6. AMOXICILLIN. [Suspect]
     Active Substance: AMOXICILLIN
     Indication: EAR INFECTION
     Dosage: UNKNOWN, BID FOR 10 DAYS
     Route: 048
     Dates: start: 2017, end: 2017

REACTIONS (2)
  - Pruritus [Recovered/Resolved]
  - Rash [Recovered/Resolved]

NARRATIVE: CASE EVENT DATE: 2017
